FAERS Safety Report 19443156 (Version 2)
Quarter: 2021Q3

REPORT INFORMATION
  Report Type: Spontaneous
  Country: US (occurrence: US)
  Receive Date: 20210621
  Receipt Date: 20210820
  Transmission Date: 20211014
  Serious: Yes (Hospitalization, Other)
  Sender: FDA-Public Use
  Company Number: US-ALXN-A202106980

PATIENT
  Age: 50 Year
  Sex: Female

DRUGS (1)
  1. SOLIRIS [Suspect]
     Active Substance: ECULIZUMAB
     Indication: PAROXYSMAL NOCTURNAL HAEMOGLOBINURIA
     Dosage: UNK
     Route: 065
     Dates: start: 201808, end: 202008

REACTIONS (15)
  - Red blood cell count decreased [Unknown]
  - Ageusia [Unknown]
  - Malaise [Unknown]
  - Abdominal discomfort [Unknown]
  - Haemoglobin decreased [Not Recovered/Not Resolved]
  - Hypopnoea [Unknown]
  - Dyspnoea exertional [Unknown]
  - Haemolysis [Unknown]
  - Pallor [Unknown]
  - Fatigue [Unknown]
  - Suspected COVID-19 [Unknown]
  - Platelet count decreased [Unknown]
  - Hypokalaemia [Unknown]
  - Insomnia [Unknown]
  - Dizziness [Unknown]

NARRATIVE: CASE EVENT DATE: 202006
